FAERS Safety Report 8610330 (Version 3)
Quarter: 2012Q4

REPORT INFORMATION
  Report Type: 
  Country: JP (occurrence: JP)
  Receive Date: 20120612
  Receipt Date: 20121113
  Transmission Date: 20130627
  Serious: Yes (Death, Hospitalization)
  Sender: FDA-Public Use
  Company Number: JP-ELI_LILLY_AND_COMPANY-JP201206000473

PATIENT
  Age: 65 Year
  Sex: Male
  Weight: 45.3 kg

DRUGS (10)
  1. GEMZAR [Suspect]
     Indication: LUNG CARCINOMA CELL TYPE UNSPECIFIED STAGE III
     Dosage: 1500 mg, UNK
     Route: 042
     Dates: start: 20100305, end: 20100402
  2. CELECOX [Concomitant]
     Dosage: 100 mg, bid
     Route: 048
     Dates: start: 20100216
  3. CYTOTEC [Concomitant]
     Dosage: 200 ug, bid
     Route: 048
     Dates: start: 20100216
  4. CODEINE PHOSPHATE [Concomitant]
     Dosage: 20 mg, prn
     Route: 048
     Dates: start: 20100305
  5. MAGLAX [Concomitant]
     Dosage: 500 mg, tid
     Route: 048
     Dates: start: 20100312
  6. DECADRON                                /CAN/ [Concomitant]
     Indication: PROPHYLAXIS
     Dosage: 2 mg, bid
     Route: 048
     Dates: start: 20100312
  7. ALLEGRA [Concomitant]
     Dosage: 60 mg, bid
     Route: 048
     Dates: start: 20100312
  8. NOVORAPID [Concomitant]
     Dosage: 16 IU, tid
     Dates: start: 20100323
  9. LEVEMIR [Concomitant]
     Dosage: 16 IU, qd
     Dates: start: 20100323
  10. DEXART [Concomitant]
     Indication: PROPHYLAXIS
     Dosage: UNK
     Route: 042
     Dates: start: 20100305

REACTIONS (2)
  - Neoplasm progression [Fatal]
  - Interstitial lung disease [Recovering/Resolving]
